FAERS Safety Report 5408160-0 (Version None)
Quarter: 2007Q3

REPORT INFORMATION
  Report Type: 
  Country: None (occurrence: None)
  Receive Date: 20070806
  Receipt Date: 20070725
  Transmission Date: 20080115
  Serious: Yes (Hospitalization)
  Sender: FDA-Public Use
  Company Number: 016421

PATIENT
  Age: 58 Year
  Sex: Male

DRUGS (1)
  1. DIAMOX [Suspect]
     Dosage: 250 MG, Q8HR, ORAL
     Route: 048

REACTIONS (5)
  - ANURIA [None]
  - BACK PAIN [None]
  - HAEMATURIA [None]
  - NO THERAPEUTIC RESPONSE [None]
  - RENAL FAILURE ACUTE [None]
